FAERS Safety Report 6377326-8 (Version None)
Quarter: 2009Q3

REPORT INFORMATION
  Report Type: 
  Country: None (occurrence: None)
  Receive Date: 20090923
  Receipt Date: 20090923
  Transmission Date: 20100115
  Serious: No
  Sender: FDA-Public Use
  Company Number: None

PATIENT
  Age: 44 Year
  Sex: Female
  Weight: 93 kg

DRUGS (8)
  1. LINEZOLID [Suspect]
     Indication: BACTERAEMIA
     Dosage: 600MG IV BID
     Route: 042
     Dates: start: 20090709, end: 20090716
  2. VENLAFAXINE [Suspect]
     Indication: DEPRESSION
     Dosage: 150MG PO QD
     Route: 048
  3. ASCORBIC ACID [Concomitant]
  4. BACLOFEN [Concomitant]
  5. ENOXAPARIN [Concomitant]
  6. GABAPENTIN [Concomitant]
  7. SENNA [Concomitant]
  8. LANSOPRAZOLE [Concomitant]

REACTIONS (3)
  - ENTEROCOCCAL BACTERAEMIA [None]
  - MULTIPLE SCLEROSIS [None]
  - SEROTONIN SYNDROME [None]
